FAERS Safety Report 7521071-X (Version None)
Quarter: 2011Q2

REPORT INFORMATION
  Report Type: 
  Country: None (occurrence: None)
  Receive Date: 20110603
  Receipt Date: 20110520
  Transmission Date: 20111010
  Serious: Yes (Death)
  Sender: FDA-Public Use
  Company Number: US-JNJFOC-20110509876

PATIENT
  Age: 23 Year
  Sex: Female

DRUGS (1)
  1. REMICADE [Suspect]
     Indication: COLITIS ULCERATIVE
     Dosage: 2 INDUCTION DOSES
     Route: 042
     Dates: start: 20110101

REACTIONS (1)
  - CYTOMEGALOVIRUS INFECTION [None]
